FAERS Safety Report 4788237-3 (Version None)
Quarter: 2005Q4

REPORT INFORMATION
  Report Type: 
  Country: None (occurrence: None)
  Receive Date: 20051003
  Receipt Date: 20050919
  Transmission Date: 20060501
  Serious: Yes (Other)
  Sender: FDA-Public Use
  Company Number: 2005106356

PATIENT
  Age: 65 Year
  Sex: Male

DRUGS (3)
  1. LIPITOR [Suspect]
     Indication: HYPERLIPIDAEMIA
     Dosage: 10 MG (10 MG, 1 IN 1 D), ORAL
     Route: 048
     Dates: start: 20030301, end: 20050101
  2. PREDNISONE [Suspect]
     Indication: ILL-DEFINED DISORDER
     Dosage: 60 MG (60 MG, 1 IN 1 D), ORAL
     Route: 048
     Dates: start: 20050101
  3. GLUCOPHAGE [Concomitant]

REACTIONS (4)
  - HEPATITIS [None]
  - MYOSITIS [None]
  - RHABDOMYOLYSIS [None]
  - WEIGHT DECREASED [None]
